FAERS Safety Report 11161509 (Version 6)
Quarter: 2019Q2

REPORT INFORMATION
  Report Type: Spontaneous
  Country: US (occurrence: US)
  Receive Date: 20150604
  Receipt Date: 20190515
  Transmission Date: 20190711
  Serious: Yes (Other)
  Sender: FDA-Public Use
  Company Number: US-SA-2014SA084179

PATIENT
  Age: 39 Year
  Sex: Female

DRUGS (6)
  1. SYNTHROID [Concomitant]
     Active Substance: LEVOTHYROXINE SODIUM
     Indication: THYROID DISORDER
     Dosage: .2 MG,UNK
     Route: 065
  2. HUMALOG [Concomitant]
     Active Substance: INSULIN LISPRO
     Dosage: UNK UNK,PRN
     Route: 065
     Dates: start: 2001
  3. LANTUS [Suspect]
     Active Substance: INSULIN GLARGINE
     Indication: TYPE 2 DIABETES MELLITUS
     Dosage: 80 DF,QD
     Route: 051
     Dates: start: 20050101, end: 20170421
  4. LANTUS [Suspect]
     Active Substance: INSULIN GLARGINE
     Dosage: 80 DF,QD
     Route: 051
     Dates: start: 20050101, end: 20170421
  5. LANTUS [Suspect]
     Active Substance: INSULIN GLARGINE
     Dosage: 80 DF,QD
     Route: 051
     Dates: start: 20050101, end: 20170421
  6. LANTUS [Suspect]
     Active Substance: INSULIN GLARGINE
     Dosage: 35 U, BID
     Route: 065

REACTIONS (3)
  - Inappropriate schedule of product administration [Unknown]
  - Blood glucose increased [Recovered/Resolved]
  - Drug ineffective [Unknown]

NARRATIVE: CASE EVENT DATE: 20140612
